FAERS Safety Report 23722151 (Version 1)
Quarter: 2024Q2

REPORT INFORMATION
  Report Type: Spontaneous
  Country: US (occurrence: None)
  Receive Date: 20240408
  Receipt Date: 20240408
  Transmission Date: 20240716
  Serious: Yes (Life-Threatening, Hospitalization, Disabling, Other)
  Sender: FDA-Public Use
  Company Number: None

PATIENT
  Age: 41 Year
  Sex: Female
  Weight: 76.5 kg

DRUGS (6)
  1. INVEGA [Suspect]
     Active Substance: PALIPERIDONE
     Indication: Schizophrenia
  2. INVEGA [Suspect]
     Active Substance: PALIPERIDONE
     Indication: Bipolar disorder
  3. ALIVE VITAMINS [Concomitant]
  4. COENZYME Q10 [Concomitant]
     Active Substance: DIETARY SUPPLEMENT\UBIDECARENONE
  5. LAXATIVES [Concomitant]
  6. MILK THISTLE [Concomitant]

REACTIONS (8)
  - Brain injury [None]
  - Blood glucose increased [None]
  - Weight increased [None]
  - Major depression [None]
  - Inability to afford medication [None]
  - Speech disorder [None]
  - Insomnia [None]
  - Sexual dysfunction [None]
